FAERS Safety Report 6585248-2 (Version None)
Quarter: 2010Q1

REPORT INFORMATION
  Report Type: 
  Country: None (occurrence: None)
  Receive Date: 20100129
  Receipt Date: 20091216
  Transmission Date: 20100710
  Serious: Yes (Hospitalization, Other)
  Sender: FDA-Public Use
  Company Number: 218233USA

PATIENT
  Age: 26 Year
  Sex: Female
  Weight: 68.0396 kg

DRUGS (1)
  1. PLAN B ONE-STEP [Suspect]
     Indication: CONTRACEPTION
     Dosage: 1.5 MG (1.5 MG, 1 IN 1 D), ORAL
     Route: 048
     Dates: start: 20091005, end: 20091005

REACTIONS (4)
  - ABDOMINAL PAIN [None]
  - DRUG INEFFECTIVE [None]
  - LOSS OF CONSCIOUSNESS [None]
  - RUPTURED ECTOPIC PREGNANCY [None]
